FAERS Safety Report 21726927 (Version 1)
Quarter: 2022Q4

REPORT INFORMATION
  Report Type: Spontaneous
  Country: US (occurrence: None)
  Receive Date: 20221213
  Receipt Date: 20221213
  Transmission Date: 20230112
  Serious: Yes (Death)
  Sender: FDA-Public Use
  Company Number: None

PATIENT
  Age: 56 Year
  Sex: Female

DRUGS (2)
  1. NIVESTYM [Suspect]
     Active Substance: FILGRASTIM-AAFI
     Indication: Breast cancer
     Dosage: OTHER STRENGTH : 480MCG/.8M;?OTHER QUANTITY : 480MCG;?FREQUENCY : DAILY;?
     Route: 048
     Dates: start: 202202
  2. KISQALI [Suspect]
     Active Substance: RIBOCICLIB
     Indication: Breast cancer
     Dosage: FREQUENCY : DAILY;?
     Route: 048
     Dates: start: 202209

REACTIONS (1)
  - Disease progression [None]

NARRATIVE: CASE EVENT DATE: 20221130
